FAERS Safety Report 9725318 (Version 1)
Quarter: 2013Q4

REPORT INFORMATION
  Report Type: Other
  Country: GB (occurrence: GB)
  Receive Date: 20131203
  Receipt Date: 20131203
  Transmission Date: 20140711
  Serious: Yes (Hospitalization)
  Sender: FDA-Public Use
  Company Number: GB-TARO PHARMACEUTICALS U.S.A., INC-2013SUN05073

PATIENT
  Age: 65 Year
  Sex: Female

DRUGS (2)
  1. WARFARIN [Suspect]
     Indication: ATRIAL FIBRILLATION
     Route: 065
  2. TRAMADOL [Interacting]
     Indication: ABDOMINAL PAIN
     Dosage: 100 MG, QID
     Route: 048
     Dates: start: 20131104, end: 20131106

REACTIONS (2)
  - Labelled drug-drug interaction medication error [Unknown]
  - International normalised ratio increased [Recovering/Resolving]
